FAERS Safety Report 19231420 (Version 1)
Quarter: 2021Q2

REPORT INFORMATION
  Report Type: Report from Study
  Country: US (occurrence: US)
  Receive Date: 20210507
  Receipt Date: 20210507
  Transmission Date: 20210717
  Serious: Yes (Hospitalization, Other)
  Sender: FDA-Public Use
  Company Number: US-BRISTOL-MYERS SQUIBB COMPANY-BMS-2021-042479

PATIENT
  Age: 84 Year
  Sex: Female
  Weight: 63.9 kg

DRUGS (2)
  1. IPILIMUMAB [Suspect]
     Active Substance: IPILIMUMAB
     Indication: MALIGNANT MELANOMA
     Dosage: 188.4 MILLIGRAM
     Route: 042
     Dates: start: 20210222
  2. NIVOLUMAB [Suspect]
     Active Substance: NIVOLUMAB
     Indication: MALIGNANT MELANOMA
     Dosage: 62.8 MILLIGRAM
     Route: 042
     Dates: start: 20210222

REACTIONS (4)
  - Duodenitis [Unknown]
  - Gastrointestinal haemorrhage [Unknown]
  - Colitis [Unknown]
  - Myositis [Unknown]

NARRATIVE: CASE EVENT DATE: 202103
